FAERS Safety Report 18456148 (Version 1)
Quarter: 2020Q4

REPORT INFORMATION
  Report Type: Spontaneous
  Country: US (occurrence: US)
  Receive Date: 20201102
  Receipt Date: 20201102
  Transmission Date: 20210114
  Serious: Yes (Hospitalization)
  Sender: FDA-Public Use
  Company Number: None

PATIENT
  Age: 10 Year
  Sex: Female

DRUGS (25)
  1. CAYSTON [Concomitant]
     Active Substance: AZTREONAM
  2. FLUTICASONE. [Concomitant]
     Active Substance: FLUTICASONE
  3. LORATADINE. [Concomitant]
     Active Substance: LORATADINE
  4. PULMOZYME [Suspect]
     Active Substance: DORNASE ALFA
     Indication: CYSTIC FIBROSIS
     Route: 055
     Dates: start: 20131213
  5. BETHKIS [Concomitant]
     Active Substance: TOBRAMYCIN
  6. PERTZYE [Concomitant]
     Active Substance: PANCRELIPASE AMYLASE\PANCRELIPASE LIPASE\PANCRELIPASE PROTEASE
  7. ALBUTEROL. [Concomitant]
     Active Substance: ALBUTEROL
  8. ONDANSETRON [Concomitant]
     Active Substance: ONDANSETRON
  9. SINGULAIR [Concomitant]
     Active Substance: MONTELUKAST SODIUM
  10. AMZ/TMP [Concomitant]
  11. MEGESTERL [Concomitant]
  12. MONTELUKAST [Concomitant]
     Active Substance: MONTELUKAST SODIUM
  13. SUCRALFATE. [Concomitant]
     Active Substance: SUCRALFATE
  14. AZITHROMYCIN ANHYDROUS. [Concomitant]
     Active Substance: AZITHROMYCIN ANHYDROUS
  15. CULTERELLE [Concomitant]
  16. ERYTHROMYCIN. [Concomitant]
     Active Substance: ERYTHROMYCIN
  17. IBUPROFEN. [Concomitant]
     Active Substance: IBUPROFEN
  18. LIDO/PRILOCN [Concomitant]
  19. PANTOPRAZOLE [Concomitant]
     Active Substance: PANTOPRAZOLE
  20. SODIUM CHLORIDE. [Concomitant]
     Active Substance: SODIUM CHLORIDE
  21. BUDESONIDE. [Concomitant]
     Active Substance: BUDESONIDE
  22. DEKAS [Concomitant]
  23. HYOSCYAMINE. [Concomitant]
     Active Substance: HYOSCYAMINE
  24. MULTI VITAMIN [Concomitant]
     Active Substance: VITAMINS
  25. VITAMIN D3 [Concomitant]
     Active Substance: CHOLECALCIFEROL

REACTIONS (1)
  - Pneumonia [None]

NARRATIVE: CASE EVENT DATE: 20200909
